FAERS Safety Report 22024385 (Version 1)
Quarter: 2023Q1

REPORT INFORMATION
  Report Type: Spontaneous
  Country: US (occurrence: US)
  Receive Date: 20230223
  Receipt Date: 20230223
  Transmission Date: 20230417
  Serious: No
  Sender: FDA-Public Use
  Company Number: US-SA-SAC20230222000615

PATIENT
  Age: 42 Year
  Sex: Male

DRUGS (2)
  1. DUPIXENT [Suspect]
     Active Substance: DUPILUMAB
     Dosage: 300 MG, QW
     Route: 058
     Dates: start: 20221006
  2. BUDESONIDE [Concomitant]
     Active Substance: BUDESONIDE
     Dosage: UNK

REACTIONS (7)
  - Infection [Unknown]
  - Illness [Unknown]
  - Stress [Unknown]
  - Acne [Recovered/Resolved]
  - Scratch [Recovered/Resolved]
  - Fatigue [Unknown]
  - Rash macular [Recovered/Resolved]
